FAERS Safety Report 4483943-2 (Version None)
Quarter: 2004Q4

REPORT INFORMATION
  Report Type: 
  Country: None (occurrence: None)
  Receive Date: 20041022
  Receipt Date: 20041022
  Transmission Date: 20050328
  Serious: Yes (Hospitalization)
  Sender: FDA-Public Use
  Company Number: None

PATIENT
  Sex: Female

DRUGS (12)
  1. LINEZOLID 600 MG PHARMACIA [Suspect]
     Indication: ENDOCARDITIS
     Dosage: 600 MG EVERY 12 HRS IV
     Route: 042
     Dates: start: 20040902, end: 20040914
  2. LINEZOLID 600 MG PHARMACIA [Suspect]
     Indication: STAPHYLOCOCCAL INFECTION
     Dosage: 600 MG EVERY 12 HRS IV
     Route: 042
     Dates: start: 20040902, end: 20040914
  3. LANSOPRAZOLE [Concomitant]
  4. DIPHENHYDRAMINE HCL [Concomitant]
  5. MAGNESIUM OXIDE [Concomitant]
  6. SIMVASTATIN [Concomitant]
  7. ASCORBIC ACID [Concomitant]
  8. CARVEDILOL [Concomitant]
  9. LOPERAMIDE HCL [Concomitant]
  10. TRIMETHOBENZAMIDE [Concomitant]
  11. CALCIUM ACETATE [Concomitant]
  12. DARBEPOETIN [Concomitant]

REACTIONS (1)
  - PANCYTOPENIA [None]
